FAERS Safety Report 12898733 (Version 1)
Quarter: 2016Q4

REPORT INFORMATION
  Report Type: Spontaneous
  Country: GB (occurrence: GB)
  Receive Date: 20161101
  Receipt Date: 20161101
  Transmission Date: 20170207
  Serious: Yes (Other)
  Sender: FDA-Public Use
  Company Number: GB-DRREDDYS-GER/UKI/16/0084403

PATIENT
  Age: 17 Year
  Sex: Female
  Weight: 84.82 kg

DRUGS (1)
  1. FLUOXETINE [Suspect]
     Active Substance: FLUOXETINE HYDROCHLORIDE
     Indication: PRODUCT USED FOR UNKNOWN INDICATION
     Route: 048
     Dates: start: 19990804, end: 20160911

REACTIONS (4)
  - Weight decreased [Not Recovered/Not Resolved]
  - Disturbance in attention [Recovering/Resolving]
  - Depressed mood [Unknown]
  - Restlessness [Recovering/Resolving]
